FAERS Safety Report 7845596-2 (Version None)
Quarter: 2011Q4

REPORT INFORMATION
  Report Type: 
  Country: None (occurrence: None)
  Receive Date: 20111025
  Receipt Date: 20111018
  Transmission Date: 20120403
  Serious: Yes (Other)
  Sender: FDA-Public Use
  Company Number: US-SHIONOGI, INC-2011000111

PATIENT

DRUGS (2)
  1. DIPHENHYDRAMINE HCL [Concomitant]
     Dosage: 25 MG EVERY 6 TO 8 HOURS
  2. EPINEPHRINE [Suspect]
     Indication: ANAPHYLACTIC REACTION
     Dosage: UNK, PRN
     Route: 030
     Dates: start: 20110526

REACTIONS (2)
  - PRODUCT QUALITY ISSUE [None]
  - DEVICE FAILURE [None]
